APPROVED DRUG PRODUCT: HYDROCORTISONE
Active Ingredient: HYDROCORTISONE
Strength: 0.5%
Dosage Form/Route: LOTION;TOPICAL
Application: A085662 | Product #001
Applicant: PERRIGO NEW YORK INC
Approved: Approved Prior to Jan 1, 1982 | RLD: No | RS: No | Type: DISCN